FAERS Safety Report 21926591 (Version 1)
Quarter: 2023Q1

REPORT INFORMATION
  Report Type: Spontaneous
  Country: None (occurrence: US)
  Receive Date: 20230130
  Receipt Date: 20230130
  Transmission Date: 20230417
  Serious: Yes (Death, Other)
  Sender: FDA-Public Use
  Company Number: US-Pharmascience Inc.-2137242

PATIENT
  Age: 23 Year
  Sex: Female

DRUGS (8)
  1. DECITABINE [Suspect]
     Active Substance: DECITABINE
     Indication: Chloroma
     Route: 065
  2. VENETOCLAX [Suspect]
     Active Substance: VENETOCLAX
  3. DAUNORUBICIN HYDROCHLORIDE [Suspect]
     Active Substance: DAUNORUBICIN HYDROCHLORIDE
  4. CYTARABINE [Suspect]
     Active Substance: CYTARABINE
  5. FLUDARABINE [Suspect]
     Active Substance: FLUDARABINE PHOSPHATE
  6. ETOPOSIDE [Suspect]
     Active Substance: ETOPOSIDE
  7. SIROLIMUS [Concomitant]
     Active Substance: SIROLIMUS
  8. TACROLIMUS [Concomitant]
     Active Substance: TACROLIMUS

REACTIONS (7)
  - Condition aggravated [Fatal]
  - Acute respiratory distress syndrome [Unknown]
  - Pulmonary haemorrhage [Unknown]
  - Pneumothorax [Unknown]
  - Cardiac arrest [Fatal]
  - Pneumonia [Unknown]
  - Drug ineffective for unapproved indication [Unknown]
